FAERS Safety Report 26171029 (Version 1)
Quarter: 2025Q4

REPORT INFORMATION
  Report Type: Spontaneous
  Country: US (occurrence: None)
  Receive Date: 20251217
  Receipt Date: 20251217
  Transmission Date: 20260118
  Serious: Yes (Hospitalization)
  Sender: FDA-CTU
  Company Number: None

PATIENT
  Age: 58 Year
  Sex: Male
  Weight: 53.2 kg

DRUGS (1)
  1. YESCARTA [Suspect]
     Active Substance: AXICABTAGENE CILOLEUCEL

REACTIONS (4)
  - Cytokine release syndrome [None]
  - Malaise [None]
  - Immune effector cell-associated neurotoxicity syndrome [None]
  - Somnolence [None]

NARRATIVE: CASE EVENT DATE: 20251130
